FAERS Safety Report 11432249 (Version 1)
Quarter: 2015Q3

REPORT INFORMATION
  Report Type: Report from Study
  Country: NL (occurrence: NL)
  Receive Date: 20150828
  Receipt Date: 20150828
  Transmission Date: 20151125
  Serious: Yes (Other)
  Sender: FDA-Public Use
  Company Number: NL-AMGEN-NLDSL2015086108

PATIENT
  Age: 72 Year
  Sex: Female

DRUGS (11)
  1. XGEVA [Suspect]
     Active Substance: DENOSUMAB
     Indication: PRODUCT USED FOR UNKNOWN INDICATION
     Dosage: 120 MG, Q4WK
     Route: 058
     Dates: start: 20140512
  2. NITROFURANTOINE [Concomitant]
     Dosage: 100 MG, UNK
     Dates: start: 20150519
  3. METOPROLOL [Concomitant]
     Active Substance: METOPROLOL
     Dosage: 50 MG, QD
     Dates: start: 20150717
  4. ESOMEPRAZOL                        /01479301/ [Concomitant]
     Active Substance: ESOMEPRAZOLE
     Dosage: 20 MG, QD
     Dates: start: 20150717
  5. ALPRAZOLAM. [Concomitant]
     Active Substance: ALPRAZOLAM
     Dosage: 0.5 MG, UNK
     Dates: start: 20150717
  6. VALSARTAN/HCT [Concomitant]
     Dosage: 320/12.5 MG
     Dates: start: 20150717
  7. NITROGLYCERINE [Concomitant]
     Active Substance: NITROGLYCERIN
     Dosage: 0.4 MG, UNK
     Dates: start: 20150708
  8. POVIDON [Concomitant]
     Dosage: UNK
     Dates: start: 20141215
  9. FLUVASTATIN [Concomitant]
     Active Substance: FLUVASTATIN SODIUM
     Dosage: 80 MG, QD
     Dates: start: 20150717
  10. CALCIUMCARBIMIDUM [Concomitant]
     Dosage: UNK
     Dates: start: 20150612
  11. VALSARTAN + HIDROCLOROTIAZIDA [Concomitant]
     Active Substance: HYDROCHLOROTHIAZIDE\VALSARTAN
     Dosage: 320/12.5 MG, QD
     Dates: start: 20150722

REACTIONS (4)
  - Chest pain [Unknown]
  - Inappropriate schedule of drug administration [Unknown]
  - Campylobacter gastroenteritis [Unknown]
  - Anaemia [Unknown]

NARRATIVE: CASE EVENT DATE: 20140803
